FAERS Safety Report 10694708 (Version 4)
Quarter: 2015Q3

REPORT INFORMATION
  Report Type: Spontaneous
  Country: US (occurrence: US)
  Receive Date: 20150107
  Receipt Date: 20150720
  Transmission Date: 20151125
  Serious: Yes (Hospitalization)
  Sender: FDA-Public Use
  Company Number: US-BAYER-2015-001673

PATIENT
  Age: 28 Year
  Sex: Female
  Weight: 75.74 kg

DRUGS (1)
  1. MIRENA [Suspect]
     Active Substance: LEVONORGESTREL
     Indication: CONTRACEPTION
     Dosage: 20 MCG/24HR, CONT
     Route: 015
     Dates: start: 20060110, end: 20110822

REACTIONS (5)
  - Device use error [None]
  - Injury [None]
  - Pain [None]
  - Embedded device [None]
  - Device issue [None]

NARRATIVE: CASE EVENT DATE: 201105
